FAERS Safety Report 15346130 (Version 8)
Quarter: 2022Q1

REPORT INFORMATION
  Report Type: Spontaneous
  Country: CA (occurrence: None)
  Receive Date: 20180904
  Receipt Date: 20220316
  Transmission Date: 20220423
  Serious: Yes (Other)
  Sender: FDA-Public Use
  Company Number: CA-ORION CORPORATION ORION PHARMA-TREX2018-2574

PATIENT
  Age: 54 Year
  Sex: Female

DRUGS (18)
  1. METHOTREXATE [Suspect]
     Active Substance: METHOTREXATE
     Indication: Product used for unknown indication
     Route: 048
     Dates: start: 201410
  2. INFLECTRA [Suspect]
     Active Substance: INFLIXIMAB-DYYB
     Indication: Psoriatic arthropathy
     Dosage: 400 MG, CYCLIC AT 0,2,6 WEEKS, THEN EVERY 8 WEEKS
     Route: 042
     Dates: start: 20170615, end: 20180503
  3. INFLECTRA [Suspect]
     Active Substance: INFLIXIMAB-DYYB
     Dosage: 400 MG, CYCLIC AT 6/8 WEEKS
     Route: 042
     Dates: start: 20180718, end: 20180718
  4. INFLECTRA [Suspect]
     Active Substance: INFLIXIMAB-DYYB
     Dosage: 400 MG, CYCLIC AT 6/8 WEEKS
     Route: 042
     Dates: start: 20180827, end: 20180827
  5. INFLECTRA [Suspect]
     Active Substance: INFLIXIMAB-DYYB
     Dosage: 400 MG, CYCLIC AT 6/8 WEEKS
     Route: 042
     Dates: start: 20180827, end: 20180827
  6. INFLECTRA [Suspect]
     Active Substance: INFLIXIMAB-DYYB
     Dosage: 400 MG, CYCLIC AT 6/8 WEEKS
     Route: 042
     Dates: start: 20181031, end: 20181031
  7. INFLECTRA [Suspect]
     Active Substance: INFLIXIMAB-DYYB
     Dosage: 400 MG, CYCLIC AT EVERY 6/8 WEEKS
     Route: 042
     Dates: start: 20181126, end: 20181126
  8. INFLECTRA [Suspect]
     Active Substance: INFLIXIMAB-DYYB
     Dosage: 400 MG, CYCLIC AT EVERY 6/8 WEEKS
     Route: 042
     Dates: start: 20190108, end: 20190108
  9. INFLECTRA [Suspect]
     Active Substance: INFLIXIMAB-DYYB
     Dosage: CYCLIC
     Route: 042
     Dates: start: 20190108, end: 20190108
  10. INFLECTRA [Suspect]
     Active Substance: INFLIXIMAB-DYYB
     Dosage: CYCLIC
     Route: 042
     Dates: start: 20190208, end: 20190208
  11. INFLECTRA [Suspect]
     Active Substance: INFLIXIMAB-DYYB
     Dosage: CYCLIC
     Route: 042
     Dates: start: 20190603, end: 20190603
  12. INFLECTRA [Suspect]
     Active Substance: INFLIXIMAB-DYYB
     Route: 042
  13. LEFLUNOMIDE [Concomitant]
     Active Substance: LEFLUNOMIDE
     Route: 048
     Dates: start: 201501
  14. VITAMIN D [Concomitant]
     Active Substance: VITAMIN D NOS
     Route: 065
  15. VIMOVO [Concomitant]
     Active Substance: ESOMEPRAZOLE MAGNESIUM\NAPROXEN
     Dosage: 500-20MG
     Route: 048
     Dates: start: 201410
  16. FOLIC ACID [Concomitant]
     Active Substance: FOLIC ACID
     Dosage: 5 MG 1 TABLET 6 TIMES WEEKLY
     Route: 048
  17. IRON [Concomitant]
     Active Substance: IRON
     Route: 048
  18. ESOMEPRAZOLE MAGNESIUM\NAPROXEN [Concomitant]
     Active Substance: ESOMEPRAZOLE MAGNESIUM\NAPROXEN
     Route: 048

REACTIONS (5)
  - Arthritis [Unknown]
  - Hypoaesthesia [Unknown]
  - Gait disturbance [Unknown]
  - Blood pressure fluctuation [Recovered/Resolved]
  - Rheumatoid arthritis [Unknown]
